FAERS Safety Report 12846062 (Version 2)
Quarter: 2016Q4

REPORT INFORMATION
  Report Type: Spontaneous
  Country: AU (occurrence: AU)
  Receive Date: 20161014
  Receipt Date: 20161017
  Transmission Date: 20170207
  Serious: Yes (Other)
  Sender: FDA-Public Use
  Company Number: AU-BEH-2016074248

PATIENT
  Age: 58 Year
  Sex: Female
  Weight: 61 kg

DRUGS (1)
  1. PRIVIGEN [Suspect]
     Active Substance: HUMAN IMMUNOGLOBULIN G
     Indication: TRANSPLANT REJECTION
     Dosage: 20 G, QOD
     Route: 042
     Dates: start: 20161003, end: 20161003

REACTIONS (6)
  - Nausea [Recovered/Resolved]
  - Vomiting [Unknown]
  - Choking sensation [Recovered/Resolved]
  - Dizziness [Recovered/Resolved]
  - Chills [Unknown]
  - Hypotension [Recovered/Resolved]

NARRATIVE: CASE EVENT DATE: 20161003
